FAERS Safety Report 8664904 (Version 3)
Quarter: 2012Q4

REPORT INFORMATION
  Report Type: 
  Country: JP (occurrence: JP)
  Receive Date: 20120713
  Receipt Date: 20120830
  Transmission Date: 20130627
  Serious: Yes (Other)
  Sender: FDA-Public Use
  Company Number: JP-PFIZER INC-2012161914

PATIENT
  Age: 57 Year
  Sex: Male

DRUGS (3)
  1. DETRUSITOL [Suspect]
     Dosage: 2 mg, one capsule 1x/day
     Route: 048
  2. DETRUSITOL [Suspect]
     Dosage: 2 mg, 2 capsules 2x/day
     Route: 048
  3. URITOS [Suspect]

REACTIONS (2)
  - Diplopia [Unknown]
  - Vision blurred [Unknown]
